FAERS Safety Report 9703986 (Version 1)
Quarter: 2013Q4

REPORT INFORMATION
  Report Type: Report from Study
  Country: GB (occurrence: GB)
  Receive Date: 20131122
  Receipt Date: 20131122
  Transmission Date: 20140711
  Serious: Yes (Hospitalization)
  Sender: FDA-Public Use
  Company Number: GB-PFIZER INC-2013331614

PATIENT
  Age: 37 Year
  Sex: Female

DRUGS (5)
  1. CYCLOPHOSPHAMIDE [Suspect]
     Indication: HER-2 POSITIVE BREAST CANCER
     Dosage: 500 MG, DAILY, LAST DOSE PRIOR TO SAE 3/APR/2012
     Route: 065
     Dates: start: 20120403
  2. EPIRUBICIN HCL [Suspect]
     Indication: HER-2 POSITIVE BREAST CANCER
     Dosage: 170 MG, DAILY, LAST DOSE PRIOR TO SAE 3/APR/2012
     Route: 065
     Dates: start: 20120403
  3. FLUOROURACIL [Suspect]
     Indication: HER-2 POSITIVE BREAST CANCER
     Dosage: 800 MG, DAILY, LAST DOSE PRIOR TO SAE 3/APR/2012
     Route: 065
     Dates: start: 20120403
  4. METOCLOPRAMIDE [Concomitant]
     Dosage: 80 MG
     Dates: start: 20120403, end: 20120424
  5. ONDANSETRON [Concomitant]
     Dosage: 8 MG
     Route: 042
     Dates: start: 20120403, end: 20120515

REACTIONS (3)
  - Nausea [Recovered/Resolved]
  - Vomiting [Recovered/Resolved]
  - Lethargy [Recovered/Resolved]
